FAERS Safety Report 6306939-4 (Version None)
Quarter: 2009Q3

REPORT INFORMATION
  Report Type: 
  Country: None (occurrence: None)
  Receive Date: 20090810
  Receipt Date: 20090728
  Transmission Date: 20100115
  Serious: Yes (Hospitalization)
  Sender: FDA-Public Use
  Company Number: WAES 0908USA00088

PATIENT
  Age: 65 Year
  Sex: Female

DRUGS (5)
  1. FOSAMAX [Suspect]
     Indication: OSTEOPOROSIS
     Dosage: 35 MG/WKY PO
     Route: 048
     Dates: start: 20071015, end: 20080110
  2. MOHRUS [Concomitant]
  3. MUCOSTA [Concomitant]
  4. ROCALTROL [Concomitant]
  5. SOFARIN [Concomitant]

REACTIONS (1)
  - HOSPITALISATION [None]
